FAERS Safety Report 4683847-6 (Version None)
Quarter: 2005Q2

REPORT INFORMATION
  Report Type: 
  Country: None (occurrence: None)
  Receive Date: 20050602
  Receipt Date: 20050224
  Transmission Date: 20051028
  Serious: No
  Sender: FDA-Public Use
  Company Number: 200421038BWH

PATIENT
  Age: 43 Year
  Sex: Male
  Weight: 117.9352 kg

DRUGS (1)
  1. LEVITRA [Suspect]
     Indication: ERECTILE DYSFUNCTION
     Dosage: 10 MG, TOTAL DAILY, ORAL
     Route: 048

REACTIONS (1)
  - TONGUE DISCOLOURATION [None]
